FAERS Safety Report 9276084 (Version 1)
Quarter: 2013Q2

REPORT INFORMATION
  Report Type: Spontaneous
  Country: US (occurrence: US)
  Receive Date: 20130507
  Receipt Date: 20130507
  Transmission Date: 20140414
  Serious: Yes (Death)
  Sender: FDA-Public Use
  Company Number: US-INCYTE CORPORATION-2013IN000915

PATIENT
  Age: 62 Year
  Sex: Male

DRUGS (2)
  1. JAKAFI [Suspect]
     Indication: MYELOFIBROSIS
     Dosage: 10 MG, BID
     Dates: start: 201208, end: 201211
  2. HYDROXYUREA [Concomitant]

REACTIONS (1)
  - Acute myeloid leukaemia [Fatal]
